FAERS Safety Report 8171461-X (Version None)
Quarter: 2012Q1

REPORT INFORMATION
  Report Type: 
  Country: None (occurrence: None)
  Receive Date: 20120228
  Receipt Date: 20120223
  Transmission Date: 20120608
  Serious: Yes (Other)
  Sender: FDA-Public Use
  Company Number: US-MEDIMMUNE-MEDI-0014319

PATIENT
  Sex: Female
  Weight: 6.4 kg

DRUGS (1)
  1. SYNAGIS [Suspect]
     Dates: start: 20111222, end: 20111222

REACTIONS (3)
  - THROMBOCYTOPENIA [None]
  - VIRAL RASH [None]
  - FEBRILE CONVULSION [None]
